FAERS Safety Report 13210297 (Version 1)
Quarter: 2017Q1

REPORT INFORMATION
  Report Type: Spontaneous
  Country: US (occurrence: US)
  Receive Date: 20170209
  Receipt Date: 20170209
  Transmission Date: 20170428
  Serious: Yes (Hospitalization)
  Sender: FDA-Public Use
  Company Number: None

PATIENT
  Age: 63 Year
  Sex: Female

DRUGS (1)
  1. IBRANCE [Suspect]
     Active Substance: PALBOCICLIB
     Indication: NEOPLASM MALIGNANT
     Dosage: 100MG TAB 1 TAB QD FOR 21 DAY PO
     Route: 048
     Dates: start: 20150902

REACTIONS (1)
  - Pleural effusion [None]

NARRATIVE: CASE EVENT DATE: 20170206
